FAERS Safety Report 13130230 (Version 2)
Quarter: 2017Q1

REPORT INFORMATION
  Report Type: Spontaneous
  Country: US (occurrence: US)
  Receive Date: 20170119
  Receipt Date: 20170309
  Transmission Date: 20170428
  Serious: Yes (Death, Other)
  Sender: FDA-Public Use
  Company Number: US-GLAXOSMITHKLINE-US2017GSK006586

PATIENT
  Sex: Male
  Weight: 80 kg

DRUGS (6)
  1. CALCIUM [Concomitant]
     Active Substance: CALCIUM
     Indication: GASTROOESOPHAGEAL REFLUX DISEASE
  2. BUPROPION. [Suspect]
     Active Substance: BUPROPION
     Indication: DEPRESSION
  3. TADALAFIL [Concomitant]
     Active Substance: TADALAFIL
     Indication: PRODUCT USED FOR UNKNOWN INDICATION
  4. BUPROPION. [Suspect]
     Active Substance: BUPROPION
     Indication: ATTENTION DEFICIT/HYPERACTIVITY DISORDER
  5. AMPHETAMINE + DEXAMFETAMINE [Suspect]
     Active Substance: AMPHETAMINE\DEXTROAMPHETAMINE
     Indication: PRODUCT USED FOR UNKNOWN INDICATION
  6. COCAINE [Suspect]
     Active Substance: COCAINE
     Indication: PRODUCT USED FOR UNKNOWN INDICATION

REACTIONS (13)
  - Acute respiratory distress syndrome [Unknown]
  - Hepatic steatosis [Unknown]
  - Lactic acidosis [Unknown]
  - Systemic inflammatory response syndrome [Unknown]
  - Multiple organ dysfunction syndrome [Unknown]
  - Toxicity to various agents [Fatal]
  - Gastrointestinal necrosis [Fatal]
  - Alcohol abuse [Unknown]
  - Intestinal ischaemia [Fatal]
  - Disseminated intravascular coagulation [Unknown]
  - Gastrointestinal haemorrhage [Fatal]
  - Drug abuse [Unknown]
  - Surgery [Unknown]
